FAERS Safety Report 10241875 (Version 1)
Quarter: 2014Q2

REPORT INFORMATION
  Report Type: Spontaneous
  Country: US (occurrence: None)
  Receive Date: 20140612
  Receipt Date: 20140612
  Transmission Date: 20141212
  Serious: Yes (Hospitalization)
  Sender: FDA-Public Use
  Company Number: UNT-2014-001661

PATIENT
  Age: 59 Year
  Sex: Male
  Weight: 134.6 kg

DRUGS (3)
  1. ORENITRAM [Suspect]
     Indication: PULMONARY ARTERIAL HYPERTENSION
     Route: 048
     Dates: start: 20140509
  2. LETAIRIS (AMBRISENTAN) [Concomitant]
  3. ADCIRCA (TADALAFIL) [Concomitant]

REACTIONS (2)
  - Cardiac failure congestive [None]
  - Pulmonary arterial hypertension [None]
